FAERS Safety Report 9664236 (Version 1)
Quarter: 2013Q4

REPORT INFORMATION
  Report Type: Spontaneous
  Country: US (occurrence: None)
  Receive Date: 20131030
  Receipt Date: 20131030
  Transmission Date: 20140711
  Serious: Yes (Other)
  Sender: FDA-Public Use
  Company Number: None

PATIENT
  Age: 28 Year
  Sex: Male
  Weight: 110 kg

DRUGS (1)
  1. MULTIHANCE [Suspect]
     Indication: HEADACHE
     Dosage: 20 ML  ONCE  IV LEFT ANTECUBITAL
     Route: 042
     Dates: start: 20131003

REACTIONS (2)
  - Nausea [None]
  - Injection site rash [None]
